FAERS Safety Report 8661279 (Version 3)
Quarter: 2013Q2

REPORT INFORMATION
  Report Type: Report from Study
  Country: JP (occurrence: JP)
  Receive Date: 20120712
  Receipt Date: 20130610
  Transmission Date: 20140414
  Serious: Yes (Other)
  Sender: FDA-Public Use
  Company Number: JP-009507513-1207JPN000119

PATIENT
  Age: 62 Year
  Sex: Female
  Weight: 44 kg

DRUGS (3)
  1. REBETOL [Suspect]
     Indication: CHRONIC HEPATITIS C
     Dosage: 200MG IN THE MORNING, 400MG IN THE AFTERNOON
     Route: 048
     Dates: start: 20100713, end: 20100722
  2. FERON [Suspect]
     Indication: CHRONIC HEPATITIS C
     Route: 042
     Dates: start: 20100713, end: 20100722
  3. LENDORMIN [Concomitant]
     Indication: INSOMNIA
     Dosage: THE DIVIDED DOSE FREQUENCY IS UNCERTAIN.
     Route: 048

REACTIONS (3)
  - Nephrotic syndrome [Recovered/Resolved]
  - Proteinuria [Recovered/Resolved]
  - Pyrexia [Recovered/Resolved]
